FAERS Safety Report 4416865-3 (Version None)
Quarter: 2004Q2

REPORT INFORMATION
  Report Type: 
  Country: None (occurrence: None)
  Receive Date: 20040628
  Receipt Date: 20040303
  Transmission Date: 20050107
  Serious: No
  Sender: FDA-Public Use
  Company Number: USA-2004-0013558

PATIENT
  Age: 35 Year
  Sex: Male

DRUGS (1)
  1. SPECTRACEF [Suspect]
     Dosage: 200 MG, BID,

REACTIONS (4)
  - ABDOMINAL PAIN [None]
  - DIARRHOEA [None]
  - NAUSEA [None]
  - VOMITING [None]
